FAERS Safety Report 13555588 (Version 4)
Quarter: 2017Q3

REPORT INFORMATION
  Report Type: Report from Study
  Country: US (occurrence: US)
  Receive Date: 20170517
  Receipt Date: 20170705
  Transmission Date: 20171127
  Serious: Yes (Hospitalization)
  Sender: FDA-Public Use
  Company Number: US-JNJFOC-20170514835

PATIENT
  Sex: Female

DRUGS (1)
  1. STELARA [Suspect]
     Active Substance: USTEKINUMAB
     Indication: CROHN^S DISEASE
     Route: 058

REACTIONS (9)
  - Bronchitis [Unknown]
  - Abdominal pain [Not Recovered/Not Resolved]
  - Spinal column stenosis [Unknown]
  - Diarrhoea [Not Recovered/Not Resolved]
  - Drug ineffective [Unknown]
  - Upper respiratory tract infection [Unknown]
  - Dehydration [Unknown]
  - Abdominal distension [Unknown]
  - Headache [Unknown]

NARRATIVE: CASE EVENT DATE: 2017
